FAERS Safety Report 10157874 (Version 2)
Quarter: 2014Q2

REPORT INFORMATION
  Report Type: Spontaneous
  Country: US (occurrence: US)
  Receive Date: 20140507
  Receipt Date: 20140606
  Transmission Date: 20141212
  Serious: Yes (Hospitalization, Other)
  Sender: FDA-Public Use
  Company Number: US-JNJFOC-20140418876

PATIENT
  Sex: Male

DRUGS (9)
  1. DURAGESIC [Suspect]
     Indication: PAIN
     Route: 062
     Dates: start: 1991
  2. DURAGESIC [Suspect]
     Indication: PAIN
     Route: 062
  3. WATSON FENTANYL TRANSDERMAL SYSTEM [Concomitant]
     Indication: PAIN
     Route: 062
  4. WATSON FENTANYL TRANSDERMAL SYSTEM [Concomitant]
     Indication: PAIN
     Route: 062
     Dates: end: 201305
  5. HYDROCODONE BITARTRATE AND ACETAMINOPHEN [Concomitant]
     Indication: BREAKTHROUGH PAIN
     Route: 065
     Dates: end: 2013
  6. OXYCODONE [Concomitant]
     Indication: PAIN
     Route: 048
     Dates: end: 2013
  7. OXYCONTIN [Concomitant]
     Indication: PAIN
     Route: 048
     Dates: end: 2013
  8. TRAMADOL [Concomitant]
     Indication: PAIN
     Route: 065
  9. ROBAXIN [Concomitant]
     Indication: MUSCLE RELAXANT THERAPY
     Route: 065

REACTIONS (8)
  - Weight decreased [Not Recovered/Not Resolved]
  - Neck pain [Not Recovered/Not Resolved]
  - Lumbar spinal stenosis [Not Recovered/Not Resolved]
  - Bladder disorder [Not Recovered/Not Resolved]
  - Nerve injury [Not Recovered/Not Resolved]
  - Spinal column stenosis [Not Recovered/Not Resolved]
  - Drug dose omission [Unknown]
  - Product adhesion issue [Unknown]
